FAERS Safety Report 17894449 (Version 2)
Quarter: 2020Q3

REPORT INFORMATION
  Report Type: Spontaneous
  Country: JP (occurrence: JP)
  Receive Date: 20200615
  Receipt Date: 20200721
  Transmission Date: 20201103
  Serious: Yes (Other)
  Sender: FDA-Public Use
  Company Number: JP-BEH-2020118620

PATIENT
  Age: 24 Year
  Sex: Female

DRUGS (4)
  1. BIO?THREE [Concomitant]
     Active Substance: HERBALS
     Route: 065
  2. HIZENTRA [Suspect]
     Active Substance: HUMAN IMMUNOGLOBULIN G
     Indication: HYPOGAMMAGLOBULINAEMIA
     Dosage: 16 GRAM, QW (1WEEK SATURDAY)
     Route: 058
     Dates: start: 2015
  3. IMURAN [Concomitant]
     Active Substance: AZATHIOPRINE
     Dosage: UNK
     Route: 065
  4. THYRADIN [Concomitant]
     Active Substance: LEVOTHYROXINE
     Route: 065

REACTIONS (1)
  - Ovarian germ cell teratoma benign [Recovered/Resolved]

NARRATIVE: CASE EVENT DATE: 2016
